FAERS Safety Report 4979019-8 (Version None)
Quarter: 2006Q2

REPORT INFORMATION
  Report Type: 
  Country: None (occurrence: None)
  Receive Date: 20060421
  Receipt Date: 20060410
  Transmission Date: 20061013
  Serious: Yes (Death, Life-Threatening, Hospitalization, Disabling, Other)
  Sender: FDA-Public Use
  Company Number: JP-ABBOTT-06P-087-0330575-00

PATIENT
  Age: 73 Year
  Sex: Female

DRUGS (12)
  1. CLARITHROMYCIN [Suspect]
     Indication: OTITIS MEDIA CHRONIC
     Route: 048
     Dates: start: 20050728, end: 20050929
  2. LAFUTIDINE [Suspect]
     Indication: GASTRIC ULCER
     Route: 048
     Dates: start: 20050806, end: 20050928
  3. ALLOPURINOL [Suspect]
     Indication: HYPERURICAEMIA
     Route: 048
     Dates: end: 20050928
  4. ATORVASTATIN CALCIUM [Suspect]
     Indication: HYPERLIPIDAEMIA
     Route: 048
     Dates: end: 20050928
  5. EPINASTINE HYDROCHLORIDE [Suspect]
     Indication: RHINITIS ALLERGIC
     Route: 048
     Dates: start: 20050728, end: 20050928
  6. SPIRONOLACTONE [Suspect]
     Indication: POLYURIA
     Route: 048
     Dates: end: 20050928
  7. SENNA LEAF/SENNA POD [Suspect]
     Indication: CONSTIPATION
     Route: 048
     Dates: start: 20050806
  8. PRECIPITATED CALCIUM CARBONATE [Suspect]
     Indication: HYPERPHOSPHATURIA
     Route: 048
     Dates: start: 20050820
  9. AZULENE SULFONATE SODIUM/L-GLUTAMINE [Suspect]
     Indication: GASTRIC ULCER
     Route: 048
  10. FUROSEMIDE [Suspect]
     Indication: POLYURIA
     Route: 048
     Dates: end: 20050906
  11. LEVOFLOXACIN [Suspect]
     Indication: OTITIS MEDIA CHRONIC
     Route: 048
     Dates: start: 20051011, end: 20051015
  12. PREDNISOLONE [Suspect]
     Indication: MUSCULOSKELETAL PAIN
     Route: 048

REACTIONS (4)
  - HAEMOLYTIC ANAEMIA [None]
  - PULMONARY OEDEMA [None]
  - RENAL FAILURE CHRONIC [None]
  - THROMBOTIC THROMBOCYTOPENIC PURPURA [None]
